FAERS Safety Report 12983490 (Version 1)
Quarter: 2016Q4

REPORT INFORMATION
  Report Type: Not Available
  Country: DK (occurrence: DK)
  Receive Date: 20161129
  Receipt Date: 20161129
  Transmission Date: 20170207
  Serious: Yes (Other)
  Sender: FDA-Public Use
  Company Number: DK-ANIPHARMA-2016-DK-000002

PATIENT
  Age: 53 Year
  Sex: Male

DRUGS (2)
  1. DICLOFENAC [Suspect]
     Active Substance: DICLOFENAC
     Dosage: 200 MG
     Route: 065
  2. IBUPROFEN (NON-SPECIFIC) [Suspect]
     Active Substance: IBUPROFEN
     Dosage: 400 MG
     Route: 065

REACTIONS (4)
  - Hypophosphataemia [Unknown]
  - Myalgia [Unknown]
  - Asthenopia [Unknown]
  - Disturbance in attention [Unknown]
